FAERS Safety Report 14318507 (Version 1)
Quarter: 2017Q4

REPORT INFORMATION
  Report Type: Spontaneous
  Country: SE (occurrence: SE)
  Receive Date: 20171222
  Receipt Date: 20171222
  Transmission Date: 20180321
  Serious: Yes (Other)
  Sender: FDA-Public Use
  Company Number: SE-MYLANLABS-2017M1078376

PATIENT
  Age: 78 Year
  Sex: Female

DRUGS (1)
  1. ERY-MAX 250 MG ENTEROKAPSEL, H?RD [Suspect]
     Active Substance: ERYTHROMYCIN
     Indication: RASH GENERALISED
     Dosage: UNK UNK, BID, 2 CAPSULES
     Dates: start: 20170901

REACTIONS (2)
  - No adverse event [Unknown]
  - Drug ineffective [Unknown]
